FAERS Safety Report 7355870-4 (Version None)
Quarter: 2011Q1

REPORT INFORMATION
  Report Type: 
  Country: None (occurrence: None)
  Receive Date: 20110311
  Receipt Date: 20110311
  Transmission Date: 20110831
  Serious: No
  Sender: FDA-Public Use
  Company Number: None

PATIENT
  Age: 58 Year
  Sex: Female
  Weight: 82.5547 kg

DRUGS (1)
  1. FENTANYL [Suspect]
     Dosage: 50 MCG X48 HOURS TRANSDERMAL
     Route: 062

REACTIONS (4)
  - PRODUCT ADHESION ISSUE [None]
  - WRONG TECHNIQUE IN DRUG USAGE PROCESS [None]
  - PRODUCT SUBSTITUTION ISSUE [None]
  - INADEQUATE ANALGESIA [None]
